FAERS Safety Report 8281570-2 (Version None)
Quarter: 2012Q2

REPORT INFORMATION
  Report Type: 
  Country: None (occurrence: None)
  Receive Date: 20120413
  Receipt Date: 20120404
  Transmission Date: 20120825
  Serious: No
  Sender: FDA-Public Use
  Company Number: BR-JNJFOC-20120402898

PATIENT
  Age: 61 Year
  Sex: Female
  Weight: 61 kg

DRUGS (4)
  1. OXYCONTIN [Concomitant]
     Route: 065
     Dates: end: 20120101
  2. DURAGESIC-100 [Suspect]
     Indication: CANCER PAIN
     Route: 062
     Dates: start: 20120329
  3. CHEMOTHERAPY [Concomitant]
     Route: 065
     Dates: start: 20111101
  4. DURAGESIC-100 [Suspect]
     Route: 062
     Dates: start: 20110101, end: 20110301

REACTIONS (3)
  - WRONG TECHNIQUE IN DRUG USAGE PROCESS [None]
  - PRODUCT QUALITY ISSUE [None]
  - PRODUCT PHYSICAL ISSUE [None]
